FAERS Safety Report 15019732 (Version 1)
Quarter: 2018Q2

REPORT INFORMATION
  Report Type: Other
  Country: GB (occurrence: GB)
  Receive Date: 20180618
  Receipt Date: 20180618
  Transmission Date: 20180711
  Serious: No
  Sender: FDA-Public Use
  Company Number: GB-LUPIN PHARMACEUTICALS INC.-2018-03253

PATIENT
  Age: 21 Year
  Sex: Female
  Weight: 78 kg

DRUGS (2)
  1. NAPROXEN. [Concomitant]
     Active Substance: NAPROXEN
     Indication: PRODUCT USED FOR UNKNOWN INDICATION
     Dosage: UNK
     Route: 065
  2. LEVONORGESTREL. [Suspect]
     Active Substance: LEVONORGESTREL
     Indication: PRODUCT USED FOR UNKNOWN INDICATION
     Dosage: 1.5 MG, UNK
     Route: 048
     Dates: start: 20180328, end: 20180328

REACTIONS (2)
  - Vaginal haemorrhage [Recovered/Resolved]
  - Abdominal pain lower [Recovered/Resolved]

NARRATIVE: CASE EVENT DATE: 20180401
